FAERS Safety Report 23552861 (Version 1)
Quarter: 2024Q1

REPORT INFORMATION
  Report Type: Spontaneous
  Country: GB (occurrence: GB)
  Receive Date: 20240222
  Receipt Date: 20240222
  Transmission Date: 20240410
  Serious: Yes (Life-Threatening)
  Sender: FDA-Public Use
  Company Number: GB-B.Braun Medical Inc.-2153540

PATIENT
  Age: 88 Year
  Sex: Female

DRUGS (2)
  1. POTASSIUM CHLORIDE [Suspect]
     Active Substance: POTASSIUM CHLORIDE
     Dates: start: 20240206, end: 20240207
  2. SODIUM CHLORIDE [Concomitant]
     Active Substance: SODIUM CHLORIDE

REACTIONS (1)
  - Anaphylactic reaction [Recovered/Resolved]
